FAERS Safety Report 7419510-8 (Version None)
Quarter: 2011Q1

REPORT INFORMATION
  Report Type: 
  Country: None (occurrence: None)
  Receive Date: 20110302
  Receipt Date: 20101124
  Transmission Date: 20110831
  Serious: No
  Sender: FDA-Public Use
  Company Number: 022872

PATIENT
  Sex: Male
  Weight: 75.8 kg

DRUGS (8)
  1. AZATHIOPRINE [Concomitant]
  2. VITAMIN B12 NOS [Concomitant]
  3. CIMZIA [Suspect]
     Indication: CROHN'S DISEASE
     Dosage: 2 SHOTS SUBCUTANEOUS
     Route: 058
     Dates: start: 20101123
  4. ATENOLOL [Concomitant]
  5. AMLODIPINE [Concomitant]
  6. POTASSIUM [Concomitant]
  7. HYDROCHLOROTHIAZIDE [Concomitant]
  8. FOLIC ACID [Concomitant]

REACTIONS (1)
  - INJECTION SITE PAIN [None]
